FAERS Safety Report 18860440 (Version 1)
Quarter: 2021Q1

REPORT INFORMATION
  Report Type: Spontaneous
  Country: US (occurrence: US)
  Receive Date: 20210208
  Receipt Date: 20210208
  Transmission Date: 20210420
  Serious: Yes (Other)
  Sender: FDA-Public Use
  Company Number: US-PFIZER INC-2020150175

PATIENT
  Age: 74 Year
  Sex: Female
  Weight: 77.11 kg

DRUGS (1)
  1. IBRANCE [Suspect]
     Active Substance: PALBOCICLIB
     Indication: NEOPLASM MALIGNANT
     Dosage: 125 MG, CYCLIC (FOR 21 DAYS AND THEN OFF 7 DAYS)
     Route: 048
     Dates: start: 20190827

REACTIONS (3)
  - Foreign body in throat [Unknown]
  - Intentional product use issue [Unknown]
  - Product size issue [Unknown]
